FAERS Safety Report 10616051 (Version 2)
Quarter: 2025Q2

REPORT INFORMATION
  Report Type: Report from Study
  Country: CA (occurrence: CA)
  Receive Date: 20141201
  Receipt Date: 20250602
  Transmission Date: 20250717
  Serious: Yes (Hospitalization, Other)
  Sender: MYLAN
  Company Number: CA-PFIZER INC-2014326329

PATIENT
  Age: 54 Year
  Sex: Male
  Weight: 85 kg

DRUGS (11)
  1. DILANTIN [Interacting]
     Active Substance: PHENYTOIN
     Indication: Product used for unknown indication
  2. PHENYTOIN [Interacting]
     Active Substance: PHENYTOIN
     Indication: Seizure
  3. VEMURAFENIB [Interacting]
     Active Substance: VEMURAFENIB
     Indication: Product used for unknown indication
     Dosage: 1920 MILLIGRAM, QD
  4. VEMURAFENIB [Interacting]
     Active Substance: VEMURAFENIB
     Dosage: 1440 MILLIGRAM, QD
  5. ZELBORAF [Interacting]
     Active Substance: VEMURAFENIB
     Indication: Metastatic malignant melanoma
     Dosage: 240 MILLIGRAM, BID (2 EVERY 1 DAY)
  6. ZELBORAF [Interacting]
     Active Substance: VEMURAFENIB
     Dosage: 720 MILLIGRAM, BID (2 EVERY 1 DAY)
  7. ZELBORAF [Interacting]
     Active Substance: VEMURAFENIB
     Dosage: 960 MILLIGRAM, BID (2 EVERY 1 DAY)
  8. ADVIL [Concomitant]
     Active Substance: IBUPROFEN
     Indication: Product used for unknown indication
  9. DEXLANSOPRAZOLE [Concomitant]
     Active Substance: DEXLANSOPRAZOLE
     Indication: Product used for unknown indication
     Dosage: 60 MILLIGRAM, QD
  10. FISH OIL [Concomitant]
     Active Substance: FISH OIL
     Indication: Product used for unknown indication
  11. DEXLANSOPRAZOLE [Concomitant]
     Active Substance: DEXLANSOPRAZOLE
     Indication: Gastrooesophageal reflux disease
     Dosage: 60 MILLIGRAM, QD (1 EVERY 1 DAY)

REACTIONS (13)
  - Drug interaction [Not Recovered/Not Resolved]
  - Seizure [Not Recovered/Not Resolved]
  - Squamous cell carcinoma [Not Recovered/Not Resolved]
  - Radiation necrosis [Not Recovered/Not Resolved]
  - Chondroma [Not Recovered/Not Resolved]
  - Rhinitis [Not Recovered/Not Resolved]
  - Coronary artery disease [Not Recovered/Not Resolved]
  - Cerebral infarction [Not Recovered/Not Resolved]
  - Encephalomalacia [Not Recovered/Not Resolved]
  - Fat tissue increased [Not Recovered/Not Resolved]
  - Gynaecomastia [Not Recovered/Not Resolved]
  - Joint effusion [Not Recovered/Not Resolved]
  - Spinal osteoarthritis [Not Recovered/Not Resolved]
